FAERS Safety Report 9869875 (Version 2)
Quarter: 2014Q1

REPORT INFORMATION
  Report Type: Spontaneous
  Country: FR (occurrence: None)
  Receive Date: 20140203
  Receipt Date: 20140214
  Transmission Date: 20141002
  Serious: Yes (Hospitalization)
  Sender: FDA-Public Use
  Company Number: 2014000017

PATIENT
  Age: 62 Year
  Sex: Male
  Weight: 84 kg

DRUGS (1)
  1. ACEON [Suspect]
     Indication: HYPERTENSION
     Route: 048
     Dates: end: 2013

REACTIONS (5)
  - Carotid artery stenosis [None]
  - Condition aggravated [None]
  - Cough [None]
  - Productive cough [None]
  - Productive cough [None]
